FAERS Safety Report 18840783 (Version 1)
Quarter: 2021Q1

REPORT INFORMATION
  Report Type: Spontaneous
  Country: AU (occurrence: AU)
  Receive Date: 20210203
  Receipt Date: 20210203
  Transmission Date: 20210419
  Serious: Yes (Other)
  Sender: FDA-Public Use
  Company Number: AU-SA-2021SA032037

PATIENT
  Sex: Female

DRUGS (9)
  1. OPTISULIN [INSULIN GLARGINE] [Suspect]
     Active Substance: INSULIN GLARGINE
  2. CALCIUM [Concomitant]
     Active Substance: CALCIUM
  3. INSULIN LISPRO [Suspect]
     Active Substance: INSULIN LISPRO
  4. BEROCCA [VITAMINS NOS] [Concomitant]
  5. KEFLEX [Concomitant]
     Active Substance: CEPHALEXIN
     Indication: URINARY TRACT INFECTION
  6. THYROXINE [Concomitant]
     Active Substance: LEVOTHYROXINE
  7. TRAJENTA [Concomitant]
     Active Substance: LINAGLIPTIN
  8. MICARDIS [Concomitant]
     Active Substance: TELMISARTAN
  9. LANTUS SOLOSTAR [Suspect]
     Active Substance: INSULIN GLARGINE

REACTIONS (17)
  - Renal pain [Unknown]
  - Liver disorder [Unknown]
  - Memory impairment [Unknown]
  - Renal disorder [Unknown]
  - Thirst [Unknown]
  - Neuropathy peripheral [Unknown]
  - Autoimmune thyroiditis [Unknown]
  - Dizziness [Unknown]
  - Diarrhoea [Unknown]
  - Weight increased [Unknown]
  - Balance disorder [Unknown]
  - Blood bilirubin increased [Unknown]
  - Dehydration [Unknown]
  - Decreased appetite [Unknown]
  - Vision blurred [Unknown]
  - Fall [Unknown]
  - Blood glucose increased [Unknown]

NARRATIVE: CASE EVENT DATE: 2019
